FAERS Safety Report 13118467 (Version 1)
Quarter: 2017Q1

REPORT INFORMATION
  Report Type: Report from Study
  Country: FR (occurrence: FR)
  Receive Date: 20170116
  Receipt Date: 20170116
  Transmission Date: 20170428
  Serious: Yes (Life-Threatening)
  Sender: FDA-Public Use
  Company Number: FR-JNJFOC-20170112740

PATIENT
  Age: 53 Year
  Sex: Female

DRUGS (5)
  1. SIMPONI [Suspect]
     Active Substance: GOLIMUMAB
     Indication: ANKYLOSING SPONDYLITIS
     Route: 058
     Dates: start: 20150421, end: 20151220
  2. PRAXILENE [Concomitant]
     Active Substance: NAFRONYL
     Route: 065
  3. PROFENID [Concomitant]
     Active Substance: KETOPROFEN
     Route: 065
  4. TERCIAN [Concomitant]
     Active Substance: CYAMEMAZINE
     Route: 065
  5. TEMESTA [Concomitant]
     Active Substance: LORAZEPAM
     Route: 065

REACTIONS (5)
  - Vein disorder [Recovered/Resolved with Sequelae]
  - Multiple fractures [Recovered/Resolved with Sequelae]
  - Pneumothorax [Recovered/Resolved with Sequelae]
  - Road traffic accident [Recovered/Resolved with Sequelae]
  - Pulmonary contusion [Recovered/Resolved with Sequelae]

NARRATIVE: CASE EVENT DATE: 20151220
